FAERS Safety Report 14142571 (Version 2)
Quarter: 2017Q4

REPORT INFORMATION
  Report Type: Spontaneous
  Country: BE (occurrence: BE)
  Receive Date: 20171030
  Receipt Date: 20171031
  Transmission Date: 20180321
  Serious: Yes (Death)
  Sender: FDA-Public Use
  Company Number: BE-009507513-1710BEL014859

PATIENT
  Sex: Female

DRUGS (1)
  1. REMERGON [Suspect]
     Active Substance: MIRTAZAPINE
     Dosage: UNK
     Route: 048

REACTIONS (2)
  - Diabetes mellitus [Unknown]
  - Aneurysm ruptured [Fatal]

NARRATIVE: CASE EVENT DATE: 2017
